FAERS Safety Report 15717400 (Version 1)
Quarter: 2018Q4

REPORT INFORMATION
  Report Type: Spontaneous
  Country: US (occurrence: US)
  Receive Date: 20181129
  Receipt Date: 20181129
  Transmission Date: 20190205
  Serious: No
  Sender: FDA-Public Use
  Company Number: None

PATIENT

DRUGS (1)
  1. DESMOPRESSIN ACETATE. [Suspect]
     Active Substance: DESMOPRESSIN ACETATE
     Route: 045

REACTIONS (2)
  - Product administration error [None]
  - Product dose omission [None]
